FAERS Safety Report 13551152 (Version 2)
Quarter: 2017Q2

REPORT INFORMATION
  Report Type: Report from Study
  Country: US (occurrence: US)
  Receive Date: 20170516
  Receipt Date: 20170531
  Transmission Date: 20170830
  Serious: Yes (Other)
  Sender: FDA-Public Use
  Company Number: US-GILEAD-2017-0272838

PATIENT
  Age: 75 Year
  Sex: Female
  Weight: 54 kg

DRUGS (10)
  1. PREDNISONE. [Concomitant]
     Active Substance: PREDNISONE
  2. METOPROLOL. [Concomitant]
     Active Substance: METOPROLOL
  3. LOSARTAN. [Concomitant]
     Active Substance: LOSARTAN
  4. SILDENAFIL. [Concomitant]
     Active Substance: SILDENAFIL
  5. HYDROCHLOROTHIAZIDE. [Concomitant]
     Active Substance: HYDROCHLOROTHIAZIDE
  6. MVI                                /01825701/ [Concomitant]
     Active Substance: VITAMINS
  7. VITAMIN B12 [Concomitant]
     Active Substance: CYANOCOBALAMIN
  8. AMBRISENTAN [Suspect]
     Active Substance: AMBRISENTAN
     Indication: PRODUCT USED FOR UNKNOWN INDICATION
     Dosage: 5 MG, QD
     Route: 065
     Dates: start: 20170213, end: 201704
  9. CYCLOSPORINE. [Concomitant]
     Active Substance: CYCLOSPORINE
  10. VITAMIN D3 [Concomitant]
     Active Substance: CHOLECALCIFEROL

REACTIONS (6)
  - Oedema peripheral [Recovered/Resolved]
  - Pyrexia [Recovered/Resolved]
  - Asthenia [Recovered/Resolved]
  - Drug ineffective [Recovered/Resolved]
  - Radiation fibrosis - lung [Not Recovered/Not Resolved]
  - Fatigue [Recovered/Resolved]
